FAERS Safety Report 24671416 (Version 1)
Quarter: 2024Q4

REPORT INFORMATION
  Report Type: Spontaneous
  Country: US (occurrence: None)
  Receive Date: 20241127
  Receipt Date: 20241127
  Transmission Date: 20250115
  Serious: Yes (Disabling, Other)
  Sender: Public
  Company Number: None

PATIENT
  Age: 61 Year
  Sex: Female
  Weight: 55.8 kg

DRUGS (8)
  1. VEOZAH [Suspect]
     Active Substance: FEZOLINETANT
     Indication: Night sweats
     Dosage: 1 TABLET DAILY ORAL
     Route: 048
     Dates: start: 20240205, end: 20240508
  2. VEOZAH [Suspect]
     Active Substance: FEZOLINETANT
     Indication: Insomnia
  3. VEOZAH [Suspect]
     Active Substance: FEZOLINETANT
     Indication: Menopause
  4. PREDNISONE [Suspect]
     Active Substance: PREDNISONE
  5. AZATHIOPRINE [Suspect]
     Active Substance: AZATHIOPRINE
  6. MONTELUKAST [Concomitant]
     Active Substance: MONTELUKAST
  7. Fluticasone Propionate and Salmeterol Inhaler 250mcg/50 mcg [Concomitant]
  8. ALBUTEROL [Concomitant]
     Active Substance: ALBUTEROL

REACTIONS (5)
  - Asthenia [None]
  - Nausea [None]
  - Diarrhoea [None]
  - Abdominal mass [None]
  - Autoimmune hepatitis [None]

NARRATIVE: CASE EVENT DATE: 20240315
